FAERS Safety Report 22007454 (Version 1)
Quarter: 2023Q1

REPORT INFORMATION
  Report Type: Spontaneous
  Country: FR (occurrence: FR)
  Receive Date: 20230218
  Receipt Date: 20230218
  Transmission Date: 20230418
  Serious: Yes (Hospitalization, Other)
  Sender: FDA-Public Use
  Company Number: FR-ABBVIE-4311923

PATIENT
  Age: 28 Year
  Sex: Male

DRUGS (11)
  1. DEPAKOTE [Suspect]
     Active Substance: DIVALPROEX SODIUM
     Indication: Bipolar disorder
     Route: 048
     Dates: start: 20230117
  2. Lansoprazole EG (Lansoprazole) [Concomitant]
     Indication: Product used for unknown indication
     Dates: start: 20230113
  3. ALGINIC ACID, ALUMINIUM HYDROXIDE, SODIUM BICARBONATE [Concomitant]
     Indication: Product used for unknown indication
  4. Gaviscon (Alginic acid;Aluminium hydroxide;Sodium bicarbonate) [Concomitant]
     Indication: Product used for unknown indication
  5. Sodium Bicarbonate bp (Sodium bicarbonate) [Concomitant]
     Indication: Product used for unknown indication
  6. BROMAZEPAM [Concomitant]
     Active Substance: BROMAZEPAM
     Indication: Product used for unknown indication
     Dates: start: 20230113
  7. GAVISCON [Concomitant]
     Active Substance: ALUMINUM HYDROXIDE\MAGNESIUM CARBONATE
     Indication: Product used for unknown indication
  8. Sulfarlem (Anethole trithione) [Concomitant]
     Indication: Product used for unknown indication
     Dates: start: 20230113
  9. ALUMINUM HYDROXIDE [Concomitant]
     Active Substance: ALUMINUM HYDROXIDE
     Indication: Product used for unknown indication
  10. FOLIC ACID [Concomitant]
     Active Substance: FOLIC ACID
     Indication: Product used for unknown indication
     Dates: start: 20230113
  11. CYAMEMAZINE [Suspect]
     Active Substance: CYAMEMAZINE
     Indication: Product used for unknown indication
     Route: 065

REACTIONS (1)
  - Impaired gastric emptying [Not Recovered/Not Resolved]

NARRATIVE: CASE EVENT DATE: 20230117
